FAERS Safety Report 7332203-0 (Version None)
Quarter: 2011Q1

REPORT INFORMATION
  Report Type: 
  Country: None (occurrence: None)
  Receive Date: 20110304
  Receipt Date: 20110226
  Transmission Date: 20110831
  Serious: Yes (Other)
  Sender: FDA-Public Use
  Company Number: US-ROCHE-687525

PATIENT
  Sex: Male

DRUGS (2)
  1. RIBAVARIN [Suspect]
     Indication: HEPATITIS C
     Dosage: DIVIDED DOSES, COMPLETED 48 WEEKS OF COURSE
     Route: 048
     Dates: start: 20090213, end: 20100108
  2. PEGASYS [Suspect]
     Indication: HEPATITIS C
     Dosage: FORM: PRE-FILLED SYRINGE, COMPLETED 48 WEEK COURSE
     Route: 058
     Dates: start: 20090213, end: 20100108

REACTIONS (12)
  - FATIGUE [None]
  - NEPHROLITHIASIS [None]
  - WHITE BLOOD CELL COUNT DECREASED [None]
  - SLEEP DISORDER [None]
  - HAEMOGLOBIN DECREASED [None]
  - APPETITE DISORDER [None]
  - DISSOCIATION [None]
  - STAPHYLOCOCCAL INFECTION [None]
  - RASH [None]
  - SUICIDAL IDEATION [None]
  - IRRITABILITY [None]
  - COGNITIVE DISORDER [None]
